FAERS Safety Report 13306146 (Version 1)
Quarter: 2017Q1

REPORT INFORMATION
  Report Type: Spontaneous
  Country: US (occurrence: US)
  Receive Date: 20170308
  Receipt Date: 20170308
  Transmission Date: 20170428
  Serious: No
  Sender: FDA-Public Use
  Company Number: US-TARO-2017TAR00024

PATIENT
  Sex: Female

DRUGS (2)
  1. ENALAPRIL MALEATE TABLETS USP 5 MG [Suspect]
     Active Substance: ENALAPRIL MALEATE
     Dosage: 10 MG, 1X/DAY
     Route: 048
     Dates: start: 20170108, end: 20170110
  2. ENALAPRIL MALEATE TABLETS USP 5 MG [Suspect]
     Active Substance: ENALAPRIL MALEATE
     Indication: HYPERTENSION
     Dosage: 5 MG, 1X/DAY
     Route: 048
     Dates: start: 2014, end: 20170107

REACTIONS (3)
  - Formication [Not Recovered/Not Resolved]
  - Burning sensation [Not Recovered/Not Resolved]
  - Reaction to drug excipients [Not Recovered/Not Resolved]
